FAERS Safety Report 15705956 (Version 1)
Quarter: 2018Q4

REPORT INFORMATION
  Report Type: Spontaneous
  Country: CZ (occurrence: CZ)
  Receive Date: 20181210
  Receipt Date: 20181210
  Transmission Date: 20190205
  Serious: Yes (Other)
  Sender: FDA-Public Use
  Company Number: CZ-TEVA-2018-CZ-984327

PATIENT
  Age: 55 Year
  Sex: Female

DRUGS (4)
  1. PRESTARIUM NEO [Concomitant]
     Active Substance: PERINDOPRIL ARGININE
     Dosage: LONG-TERM MEDICATION
  2. STREPSILS [Concomitant]
     Indication: VIRAL INFECTION
  3. GLUCOPHAGE [Concomitant]
     Active Substance: METFORMIN HYDROCHLORIDE
     Dosage: LONG-TERM MEDICATION
  4. TERBINAFIN ACTAVIS 250MG [Suspect]
     Active Substance: TERBINAFINE HYDROCHLORIDE
     Indication: ONYCHOMYCOSIS
     Dosage: 250 MILLIGRAM DAILY; DOSAGE 0-1-0??EXPIRATION DATE 1/2021
     Route: 048
     Dates: start: 20180823, end: 20181003

REACTIONS (3)
  - Ageusia [Not Recovered/Not Resolved]
  - Dysgeusia [Recovered/Resolved]
  - Burning sensation mucosal [Recovered/Resolved]

NARRATIVE: CASE EVENT DATE: 20181003
